FAERS Safety Report 20010659 (Version 1)
Quarter: 2021Q4

REPORT INFORMATION
  Report Type: Spontaneous
  Country: US (occurrence: US)
  Receive Date: 20211028
  Receipt Date: 20211028
  Transmission Date: 20220303
  Serious: Yes (Hospitalization, Other)
  Sender: FDA-Public Use
  Company Number: US-BRISTOL-MYERS SQUIBB COMPANY-BMS-2021-112786

PATIENT
  Age: 74 Year
  Sex: Male
  Weight: 90.7 kg

DRUGS (4)
  1. ELIQUIS [Suspect]
     Active Substance: APIXABAN
     Indication: Deep vein thrombosis
     Dosage: 2.5 MILLIGRAM, BID
     Route: 048
     Dates: start: 20201203
  2. ELIQUIS [Suspect]
     Active Substance: APIXABAN
     Dosage: 5 MILLIGRAM, BID
     Route: 048
  3. SILODERM [Concomitant]
     Indication: Product used for unknown indication
     Dosage: UNK
     Route: 065
  4. ASCORBIC ACID\ERGOCALCIFEROL\NIACINAMIDE\RETINOL\RIBOFLAVIN\THIAMINE [Concomitant]
     Active Substance: ASCORBIC ACID\ERGOCALCIFEROL\NIACINAMIDE\RETINOL\RIBOFLAVIN\THIAMINE
     Indication: Product used for unknown indication
     Dosage: UNK
     Route: 065

REACTIONS (3)
  - Loss of consciousness [Unknown]
  - Thrombosis [Unknown]
  - Prescribed underdose [Unknown]
